FAERS Safety Report 6578807-4 (Version None)
Quarter: 2010Q1

REPORT INFORMATION
  Report Type: 
  Country: None (occurrence: None)
  Receive Date: 20100202
  Receipt Date: 20100118
  Transmission Date: 20100710
  Serious: Yes (Death)
  Sender: FDA-Public Use
  Company Number: 2010S1000037

PATIENT
  Age: 36 Year
  Sex: Female

DRUGS (5)
  1. ROXICODONE [Suspect]
     Dates: end: 20080101
  2. HYDROCODONE [Suspect]
     Dates: end: 20080101
  3. BENZODIAZEPINE [Suspect]
     Dates: end: 20080101
  4. OXYMORPHONE [Suspect]
     Dates: end: 20080101
  5. ALPRAZOLAM [Suspect]
     Dates: end: 20080101

REACTIONS (3)
  - CARDIAC ARREST [None]
  - COMPLETED SUICIDE [None]
  - RESPIRATORY ARREST [None]
